FAERS Safety Report 10952983 (Version 1)
Quarter: 2015Q1

REPORT INFORMATION
  Report Type: Spontaneous
  Country: US (occurrence: None)
  Receive Date: 20150323
  Receipt Date: 20150323
  Transmission Date: 20150721
  Serious: Yes (Other)
  Sender: FDA-Public Use
  Company Number: FK201501250

PATIENT
  Sex: Male

DRUGS (7)
  1. GROWTH HORMONE (SOMATRIPTIN) [Concomitant]
  2. DULOXETINE [Concomitant]
     Active Substance: DULOXETINE
  3. TESTOSTERONE. [Concomitant]
     Active Substance: TESTOSTERONE
  4. MORPHINE (MANUFACTURER UNKNOWN) (MORPHINE) (MORPHINE) [Suspect]
     Active Substance: MORPHINE
     Indication: PAIN
     Dosage: VIA PUMP
     Route: 037
     Dates: start: 1995, end: 2006
  5. HYDROCORTISONE. [Concomitant]
     Active Substance: HYDROCORTISONE
  6. MORPHINE [Suspect]
     Active Substance: MORPHINE
     Route: 048
     Dates: start: 2007
  7. LEVOTHYROXINE [Concomitant]
     Active Substance: LEVOTHYROXINE

REACTIONS (4)
  - Secondary hypothyroidism [None]
  - Secondary adrenocortical insufficiency [None]
  - Secondary hypogonadism [None]
  - Oedema peripheral [None]

NARRATIVE: CASE EVENT DATE: 200706
